FAERS Safety Report 8049960-0 (Version None)
Quarter: 2012Q1

REPORT INFORMATION
  Report Type: 
  Country: None (occurrence: None)
  Receive Date: 20120117
  Receipt Date: 20120116
  Transmission Date: 20120608
  Serious: Yes (Death, Hospitalization, Other)
  Sender: FDA-Public Use
  Company Number: AU-PFIZER INC-2011299151

PATIENT
  Age: 58 Year
  Sex: Male
  Weight: 50 kg

DRUGS (1)
  1. LYRICA [Suspect]
     Indication: NEUROPATHY PERIPHERAL
     Dosage: 75 MG, AT NIGHT
     Route: 048
     Dates: start: 20090306, end: 20110101

REACTIONS (6)
  - FALL [None]
  - RENAL FAILURE [None]
  - VASCULAR INSUFFICIENCY [None]
  - TIBIA FRACTURE [None]
  - INFECTION [None]
  - FIBULA FRACTURE [None]
